FAERS Safety Report 15627267 (Version 1)
Quarter: 2018Q4

REPORT INFORMATION
  Report Type: Spontaneous
  Country: FR (occurrence: FR)
  Receive Date: 20181116
  Receipt Date: 20181116
  Transmission Date: 20190205
  Serious: Yes (Hospitalization)
  Sender: FDA-Public Use
  Company Number: FR-PFIZER INC-2018464534

PATIENT
  Age: 73 Year
  Sex: Male
  Weight: 81 kg

DRUGS (6)
  1. METHYLPREDNISOLONE MYLAN [METHYLPREDNISOLONE HEMISUCCINATE] [Concomitant]
     Active Substance: METHYLPREDNISOLONE HEMISUCCINATE
     Indication: ADULT T-CELL LYMPHOMA/LEUKAEMIA
     Dosage: UNK
     Route: 042
     Dates: start: 20180528, end: 20180807
  2. VINCRISTINE SULFATE. [Suspect]
     Active Substance: VINCRISTINE SULFATE
     Indication: ADULT T-CELL LYMPHOMA/LEUKAEMIA RECURRENT
     Dosage: 2 MG, CYCLIC
     Route: 042
     Dates: start: 20180528, end: 20180807
  3. DOXORUBICINE ACCORD [Suspect]
     Active Substance: DOXORUBICIN
     Indication: ADULT T-CELL LYMPHOMA/LEUKAEMIA
     Dosage: 90 MG, CYCLIC
     Route: 042
     Dates: start: 20180528, end: 20180807
  4. ENDOXAN [CYCLOPHOSPHAMIDE] [Suspect]
     Active Substance: CYCLOPHOSPHAMIDE
     Indication: ADULT T-CELL LYMPHOMA/LEUKAEMIA
     Dosage: 1400 MG, CYCLIC
     Route: 042
     Dates: start: 20180528, end: 20180807
  5. METHOTREXATE BIODIM [Suspect]
     Active Substance: METHOTREXATE
     Indication: ADULT T-CELL LYMPHOMA/LEUKAEMIA
     Dosage: 15 MG, SINGLE
     Route: 037
     Dates: start: 20180528, end: 20180807
  6. MABTHERA [Suspect]
     Active Substance: RITUXIMAB
     Indication: ADULT T-CELL LYMPHOMA/LEUKAEMIA
     Dosage: 1400 MG, CYCLIC
     Route: 058
     Dates: start: 20180528, end: 20180807

REACTIONS (1)
  - Mucosal inflammation [Recovered/Resolved]

NARRATIVE: CASE EVENT DATE: 20180815
